FAERS Safety Report 7363156-7 (Version None)
Quarter: 2011Q1

REPORT INFORMATION
  Report Type: 
  Country: None (occurrence: None)
  Receive Date: 20110321
  Receipt Date: 20100108
  Transmission Date: 20110831
  Serious: Yes (Hospitalization, Other)
  Sender: FDA-Public Use
  Company Number: US-BAYER-201010322NA

PATIENT
  Sex: Female
  Weight: 83 kg

DRUGS (29)
  1. DIGOXIN [Concomitant]
     Dosage: 0.125 MG DAILY
     Route: 048
     Dates: end: 20070726
  2. ASPIRIN [Concomitant]
     Dosage: 81 MG, QD
     Dates: end: 20070726
  3. MIDAZOLAM [Concomitant]
     Dosage: 3 / 2 / 5 MG
     Route: 042
     Dates: start: 20070726
  4. LASIX [Concomitant]
     Dosage: 90 MG/H CONTINUOUS
     Route: 042
     Dates: start: 20070730
  5. HIBIDIL [Concomitant]
     Dosage: 1 TABLET TWICE PER DAY
     Route: 048
     Dates: end: 20070726
  6. HEPARIN SODIUM [Concomitant]
     Dosage: 24 X 5000 UNITS
     Route: 042
     Dates: start: 20070726
  7. HEPARIN SODIUM [Concomitant]
     Dosage: UNK
  8. MANITOL [Concomitant]
     Dosage: 25 GMS
     Dates: start: 20070726, end: 20070726
  9. TRASYLOL [Suspect]
     Indication: CORONARY ARTERY BYPASS
     Dosage: 500 CC/H
     Route: 042
     Dates: start: 20070726, end: 20070726
  10. TRASYLOL [Suspect]
     Indication: MITRAL VALVE REPLACEMENT
     Dosage: 200 ML, LOADING DOSE
     Dates: start: 20070726, end: 20070726
  11. LASIX [Concomitant]
     Dosage: 20 MG, BID
     Route: 042
     Dates: start: 20070727
  12. FEXOFENADINE [Concomitant]
     Dosage: 60 MG EVERY12 HRS WHEN NEEDED
     Route: 048
     Dates: end: 20070726
  13. DOPAMINE [Concomitant]
     Dosage: 5 MCG/KG/MIN
     Route: 042
     Dates: start: 20070726
  14. MILRINONE [Concomitant]
     Dosage: 5 MCG/KG/MIN
     Route: 042
     Dates: start: 20070726, end: 20080803
  15. FRESH FROZEN PLASMA [Concomitant]
     Dosage: 6 U, UNK
     Dates: start: 20070726, end: 20070726
  16. NITROGLYCERIN [Concomitant]
     Dosage: PRN
     Route: 048
     Dates: end: 20070726
  17. PLAVIX [Concomitant]
     Dosage: 75 MG DAILY
     Route: 048
  18. VANCOMYCIN [Concomitant]
     Dosage: 1 G, UNK
     Route: 042
     Dates: start: 20070728
  19. MUCOMYST [Concomitant]
     Dosage: UNK
     Dates: start: 20070801
  20. ALPRAZOLAM [Concomitant]
     Dosage: 0.5 MG THREE TIMES PER DAY
     Route: 048
     Dates: end: 20070726
  21. LASIX [Concomitant]
     Dosage: 40 MG 2X DAILY
     Route: 048
     Dates: end: 20070726
  22. VANCOMYCIN [Concomitant]
     Dosage: 1 G, UNK
     Route: 042
     Dates: start: 20070726
  23. COREG [Concomitant]
     Dosage: 25 MG, QD
     Route: 048
     Dates: end: 20070726
  24. PAPAVERINE [Concomitant]
     Dosage: 30 ML
     Route: 042
     Dates: start: 20070726, end: 20070726
  25. VANCOMYCIN [Concomitant]
     Dosage: 1 G, UNK
     Route: 042
     Dates: start: 20070730
  26. RED BLOOD CELLS [Concomitant]
     Dosage: 5 U, UNK
     Route: 042
     Dates: start: 20070726
  27. PLATELETS [Concomitant]
     Dosage: 1 U, UNK
     Route: 042
     Dates: start: 20070726, end: 20070726
  28. LASIX [Concomitant]
     Dosage: 100 MG, IV BOLUS
     Route: 042
     Dates: start: 20070730
  29. NITROGLYCERIN [Concomitant]
     Dosage: MICROGRAM/MIN
     Route: 042
     Dates: start: 20070726, end: 20070727

REACTIONS (12)
  - RENAL IMPAIRMENT [None]
  - UNEVALUABLE EVENT [None]
  - GASTRIC DISORDER [None]
  - INJURY [None]
  - ANXIETY [None]
  - PAIN [None]
  - PANIC ATTACK [None]
  - FEAR [None]
  - STRESS [None]
  - RENAL INJURY [None]
  - EMOTIONAL DISTRESS [None]
  - RENAL FAILURE [None]
